FAERS Safety Report 25430188 (Version 1)
Quarter: 2025Q2

REPORT INFORMATION
  Report Type: Spontaneous
  Country: GB (occurrence: GB)
  Receive Date: 20250612
  Receipt Date: 20250612
  Transmission Date: 20250717
  Serious: Yes (Hospitalization, Other)
  Sender: ELI LILLY AND COMPANY
  Company Number: None

PATIENT
  Sex: Female

DRUGS (1)
  1. MOUNJARO [Suspect]
     Active Substance: TIRZEPATIDE
     Indication: Weight control
     Route: 065
     Dates: start: 20250418, end: 20250509

REACTIONS (3)
  - Palpitations [Not Recovered/Not Resolved]
  - Medication error [Unknown]
  - Panic attack [Unknown]

NARRATIVE: CASE EVENT DATE: 20250509
